FAERS Safety Report 5659238-8 (Version None)
Quarter: 2008Q1

REPORT INFORMATION
  Report Type: 
  Country: None (occurrence: None)
  Receive Date: 20080311
  Receipt Date: 20070817
  Transmission Date: 20080703
  Serious: Yes (Other)
  Sender: FDA-Public Use
  Company Number: US-BAYER-200711974BCC

PATIENT
  Age: 85 Year
  Sex: Male
  Weight: 66 kg

DRUGS (2)
  1. ALEVE [Suspect]
     Indication: PAIN
     Dosage: UNIT DOSE: 220 MG
     Route: 048
     Dates: start: 20070620
  2. XANAX [Suspect]
     Indication: DRUG USE FOR UNKNOWN INDICATION
     Route: 048
     Dates: start: 20070620

REACTIONS (4)
  - CHEST DISCOMFORT [None]
  - DISORIENTATION [None]
  - DYSPEPSIA [None]
  - FATIGUE [None]
